FAERS Safety Report 4435329-4 (Version None)
Quarter: 2004Q3

REPORT INFORMATION
  Report Type: 
  Country: None (occurrence: None)
  Receive Date: 20040827
  Receipt Date: 20040816
  Transmission Date: 20050211
  Serious: Yes (Other)
  Sender: FDA-Public Use
  Company Number: US-JNJFOC-20040805629

PATIENT
  Age: 45 Year
  Sex: Female

DRUGS (3)
  1. DURAGESIC [Suspect]
     Route: 062
     Dates: start: 20020101
  2. DURAGESIC [Suspect]
     Route: 062
     Dates: start: 20020101
  3. DURAGESIC [Suspect]
     Route: 062
     Dates: start: 20020101

REACTIONS (5)
  - LOSS OF CONSCIOUSNESS [None]
  - MEMORY IMPAIRMENT [None]
  - MUSCLE CONTRACTIONS INVOLUNTARY [None]
  - ORTHOPNOEA [None]
  - VISION BLURRED [None]
